FAERS Safety Report 6146835-9 (Version None)
Quarter: 2009Q2

REPORT INFORMATION
  Report Type: 
  Country: None (occurrence: None)
  Receive Date: 20090406
  Receipt Date: 20090406
  Transmission Date: 20091009
  Serious: Yes (Other)
  Sender: FDA-Public Use
  Company Number: None

PATIENT
  Sex: Male
  Weight: 124.7392 kg

DRUGS (1)
  1. GLIMEPIRIDE [Suspect]
     Indication: BLOOD GLUCOSE
     Dosage: 2 MG TWICE A DAY
     Dates: start: 20090312, end: 20090313

REACTIONS (2)
  - BLOOD GLUCOSE ABNORMAL [None]
  - PRODUCT QUALITY ISSUE [None]
